FAERS Safety Report 18658817 (Version 1)
Quarter: 2020Q4

REPORT INFORMATION
  Report Type: Spontaneous
  Country: FR (occurrence: FR)
  Receive Date: 20201223
  Receipt Date: 20201223
  Transmission Date: 20210114
  Serious: Yes (Disabling)
  Sender: FDA-Public Use
  Company Number: FR-PFIZER INC-2020501362

PATIENT
  Age: 45 Year
  Sex: Female
  Weight: 70 kg

DRUGS (8)
  1. PREGABALIN. [Suspect]
     Active Substance: PREGABALIN
     Indication: PAIN
     Dosage: UNK
     Route: 048
     Dates: start: 2015, end: 2019
  2. MAGNESIUM LACTAT [Suspect]
     Active Substance: MAGNESIUM LACTATE
     Dosage: 4 DF
     Dates: end: 2019
  3. CYMBALTA [Suspect]
     Active Substance: DULOXETINE HYDROCHLORIDE
     Dosage: 60 MG, DAILY
     Route: 048
     Dates: start: 2015, end: 2019
  4. PIRACETAM [Suspect]
     Active Substance: PIRACETAM
     Dosage: 800 MG
     Dates: start: 2015, end: 2019
  5. TRAMADOL HCL [Suspect]
     Active Substance: TRAMADOL HYDROCHLORIDE
     Indication: PAIN
     Dosage: 150 MG
     Route: 048
     Dates: end: 2019
  6. ALMOGRAN [Suspect]
     Active Substance: ALMOTRIPTAN MALATE
     Indication: PAIN
     Dosage: 2 DF, DAILY
     Route: 048
     Dates: start: 2018, end: 2019
  7. LAMALINE [ATROPA BELLADONNA EXTRACT;CAFFEINE;PAPAVER SOMNIFERUM TINCTU [Suspect]
     Active Substance: ACETAMINOPHEN\BELLADONNA LEAF\CAFFEINE\OPIUM
     Dosage: 340 MG
     Dates: start: 2015, end: 2019
  8. ANAFRANIL [Suspect]
     Active Substance: CLOMIPRAMINE HYDROCHLORIDE
     Indication: PAIN
     Dosage: UNK
     Route: 048
     Dates: end: 2019

REACTIONS (3)
  - Balance disorder [Not Recovered/Not Resolved]
  - Neuropathy peripheral [Not Recovered/Not Resolved]
  - Malaise [Recovered/Resolved]

NARRATIVE: CASE EVENT DATE: 2017
